FAERS Safety Report 5315866-0 (Version None)
Quarter: 2007Q2

REPORT INFORMATION
  Report Type: 
  Country: None (occurrence: None)
  Receive Date: 20070503
  Receipt Date: 20070427
  Transmission Date: 20071010
  Serious: Yes (Life-Threatening, Hospitalization)
  Sender: FDA-Public Use
  Company Number: US-JNJFOC-20070202152

PATIENT
  Sex: Female
  Weight: 57.4 kg

DRUGS (9)
  1. YONDELIS [Suspect]
     Dosage: CYCLE 2
     Route: 042
  2. YONDELIS [Suspect]
     Indication: OVARIAN CANCER
     Route: 042
  3. DOXIL [Suspect]
     Dosage: CYCLE 2
     Route: 042
  4. DOXIL [Suspect]
     Indication: OVARIAN CANCER
     Route: 042
  5. SYNTHROID [Concomitant]
     Indication: HYPOTHYROIDISM
     Route: 048
  6. TYLENOL EXTRA STRENGTH [Concomitant]
     Indication: PAIN
  7. ATIVAN [Concomitant]
     Route: 048
  8. ALBUTEROL [Concomitant]
     Indication: ASTHMA
     Route: 055
  9. TYLENOL [Concomitant]
     Indication: PAIN
     Route: 048

REACTIONS (8)
  - ANXIETY [None]
  - CHEST DISCOMFORT [None]
  - CONSTIPATION [None]
  - DIARRHOEA [None]
  - ELECTROCARDIOGRAM CHANGE [None]
  - NAUSEA [None]
  - PALPITATIONS [None]
  - RASH [None]
